FAERS Safety Report 6223731-X (Version None)
Quarter: 2009Q2

REPORT INFORMATION
  Report Type: 
  Country: None (occurrence: None)
  Receive Date: 20090611
  Receipt Date: 20090512
  Transmission Date: 20091009
  Serious: Yes (Other)
  Sender: FDA-Public Use
  Company Number: PR-ABBOTT-09P-131-0571513-00

PATIENT
  Sex: Male
  Weight: 73.548 kg

DRUGS (8)
  1. HUMIRA [Suspect]
     Indication: PSORIASIS
     Route: 058
     Dates: start: 20081001, end: 20090506
  2. PRED FORTE [Concomitant]
     Indication: UVEITIS
     Route: 047
  3. PRED FORTE [Concomitant]
     Indication: GLAUCOMA
  4. AZOPT [Concomitant]
     Indication: UVEITIS
     Route: 047
     Dates: start: 20090402
  5. AZOPT [Concomitant]
     Indication: GLAUCOMA
  6. NEVANAC [Concomitant]
     Indication: UVEITIS
     Route: 047
  7. NEVANAC [Concomitant]
     Indication: GLAUCOMA
  8. METHOTREXATE [Concomitant]
     Indication: PSORIASIS
     Route: 030
     Dates: end: 20081201

REACTIONS (4)
  - CATARACT [None]
  - HEPATIC ENZYME INCREASED [None]
  - PARAESTHESIA [None]
  - PRURITUS [None]
